FAERS Safety Report 9302112 (Version 1)
Quarter: 2013Q2

REPORT INFORMATION
  Report Type: Spontaneous
  Country: DK (occurrence: DK)
  Receive Date: 20130521
  Receipt Date: 20130521
  Transmission Date: 20140414
  Serious: Yes (Death)
  Sender: FDA-Public Use
  Company Number: DK-009507513-1305DNK011763

PATIENT
  Age: 65 Year
  Sex: Male
  Weight: 87 kg

DRUGS (12)
  1. JANUMET [Suspect]
     Indication: DIABETES MELLITUS
     Dosage: DOSIS: 1 TABLET 2 TIMES DAILY,STRENGTH: 1000 + 50 MG
     Route: 048
     Dates: start: 20130411
  2. UNI DIAMICRON [Concomitant]
     Indication: DIABETES MELLITUS
     Dosage: DOSIS: 1 TABLET DAILY, STRENGTH: 30 MG
     Route: 048
     Dates: start: 2007
  3. OMEPRAZOLE [Concomitant]
     Indication: PRODUCT USED FOR UNKNOWN INDICATION
     Dosage: DOSIS: 1 TABLET DAILY, STRENGTH: 20 MG
     Route: 048
     Dates: start: 2011
  4. AMLODIPIN ACTAVIS (AMLODIPINE MESYLATE) [Concomitant]
     Indication: PRODUCT USED FOR UNKNOWN INDICATION
     Dosage: DOSIS: 1 TABLET DAILY, STRENGTH: 10 MG
     Route: 048
     Dates: start: 2007
  5. HYDROCHLOROTHIAZIDE (+) RAMIPRIL [Concomitant]
     Indication: PRODUCT USED FOR UNKNOWN INDICATION
     Dosage: DOSIS: 2 TABLETS DAILY, STRENGTH:5 + 25 MG
     Route: 048
     Dates: start: 2011
  6. SELO-ZOK [Concomitant]
     Indication: HYPERTENSION
     Dosage: DOSIS: 1 TABLET 2 TIMES DAILY, STRENGTH: 100 MG
     Route: 048
     Dates: start: 201202
  7. ZARATOR [Concomitant]
     Indication: HYPERCHOLESTEROLAEMIA
     Dosage: : DOSIS: 1 TABLET DAILY, STRENGTH: 80 MG
     Route: 048
     Dates: start: 201203
  8. VENLAFAXINE HYDROCHLORIDE [Concomitant]
     Indication: PRODUCT USED FOR UNKNOWN INDICATION
     Dosage: DOSIS: 1 TABLET DAILY, STRENGTH: 75 MG
     Route: 048
     Dates: start: 201203
  9. SEROQUEL [Concomitant]
     Indication: DEPRESSION
     Dosage: DOSIS: 1 TABLET DAILY, STRENGTH: 25 MG
     Route: 048
     Dates: start: 2009
  10. ULTRACORTENOL [Concomitant]
     Indication: IRIDOCYCLITIS
     Dosage: DOSIS: 1 TABLET DAILY, STRENGTH: 0.5%
     Route: 047
  11. LUMIGAN [Concomitant]
     Indication: GLAUCOMA
     Dosage: DOSIS: 1 DROP DAILY, STRENGTH: 0.3 MG/ML
     Route: 047
  12. COSOPT PRESERVATIVE FREE [Concomitant]
     Indication: GLAUCOMA
     Route: 047

REACTIONS (1)
  - Death [Fatal]
